FAERS Safety Report 18704466 (Version 3)
Quarter: 2021Q1

REPORT INFORMATION
  Report Type: Spontaneous
  Country: ES (occurrence: ES)
  Receive Date: 20210106
  Receipt Date: 20210128
  Transmission Date: 20210419
  Serious: Yes (Hospitalization, Other)
  Sender: FDA-Public Use
  Company Number: ES-SUN PHARMACEUTICAL INDUSTRIES LTD-2020RR-274185

PATIENT
  Age: 32 Year
  Sex: Female

DRUGS (12)
  1. CEFDITOREN [Concomitant]
     Active Substance: CEFDITOREN
     Dosage: 400 MILLIGRAM, 2X / DAY (EVERY 12 HOURS)
     Route: 065
  2. OMEPRAZOL [Concomitant]
     Active Substance: OMEPRAZOLE
     Indication: HIATUS HERNIA
     Dosage: 20 MILLIGRAM, 2X / DAY (EVERY 12 HOURS)
     Route: 065
  3. CEFDITOREN [Concomitant]
     Active Substance: CEFDITOREN
     Indication: COVID-19
     Dosage: 400 MILLIGRAM, 2X / DAY (EVERY 12 HOURS)
     Route: 065
  4. HYDROXYCHLOROQUINE [Suspect]
     Active Substance: HYDROXYCHLOROQUINE
     Dosage: 200 MILLIGRAM, BID
     Route: 065
  5. HYDROXYCHLOROQUINE [Suspect]
     Active Substance: HYDROXYCHLOROQUINE
     Indication: COVID-19
     Dosage: 400 MILLIGRAM, 2X / DAY (EVERY 12 HOURS, LOADING DOSE ON FIRST DAY)
     Route: 065
  6. HYDROXYCHLOROQUINE [Suspect]
     Active Substance: HYDROXYCHLOROQUINE
     Dosage: UNK
     Route: 065
  7. HYDROXYCHLOROQUINE [Suspect]
     Active Substance: HYDROXYCHLOROQUINE
     Dosage: UNK
     Route: 065
  8. OMEPRAZOL [Concomitant]
     Active Substance: OMEPRAZOLE
     Dosage: 20 MILLIGRAM, 2X / DAY (EVERY 12 HOURS)
     Route: 065
  9. AZITHROMYCIN ANHYDROUS. [Suspect]
     Active Substance: AZITHROMYCIN ANHYDROUS
     Indication: COVID-19
     Dosage: 500 MILLIGRAM, 1X / DAY (EVERY 24 HOURS)
     Route: 065
  10. CEFDITOREN [Concomitant]
     Active Substance: CEFDITOREN
     Dosage: 400 MILLIGRAM, 2X / DAY (EVERY 12 HOURS)
     Route: 065
  11. OMEPRAZOL [Concomitant]
     Active Substance: OMEPRAZOLE
     Dosage: 20 MILLIGRAM, 2X / DAY (EVERY 12 HOURS)
     Route: 065
  12. HYDROXYCHLOROQUINE [Suspect]
     Active Substance: HYDROXYCHLOROQUINE
     Dosage: UNK
     Route: 065

REACTIONS (10)
  - Drug interaction [Unknown]
  - Mitral valve incompetence [Unknown]
  - COVID-19 [Unknown]
  - Cardiac failure chronic [Unknown]
  - Dyspnoea exertional [Unknown]
  - Tachycardia [Recovered/Resolved]
  - Off label use [Unknown]
  - Product use in unapproved indication [Unknown]
  - Extrasystoles [Recovered/Resolved]
  - Cardiac failure [Unknown]
